FAERS Safety Report 24260610 (Version 1)
Quarter: 2024Q3

REPORT INFORMATION
  Report Type: Spontaneous
  Country: US (occurrence: US)
  Receive Date: 20240828
  Receipt Date: 20240828
  Transmission Date: 20241017
  Serious: Yes (Hospitalization, Disabling, Other)
  Sender: MERCK
  Company Number: US-009507513-2408USA008596

PATIENT
  Sex: Female

DRUGS (2)
  1. KEYTRUDA [Suspect]
     Active Substance: PEMBROLIZUMAB
     Indication: Head and neck cancer
     Route: 042
  2. CETUXIMAB [Suspect]
     Active Substance: CETUXIMAB

REACTIONS (3)
  - Pneumonitis [Unknown]
  - Malignant neoplasm progression [Unknown]
  - Hospice care [Unknown]
